FAERS Safety Report 5374589-2 (Version None)
Quarter: 2007Q2

REPORT INFORMATION
  Report Type: 
  Country: None (occurrence: None)
  Receive Date: 20070629
  Receipt Date: 20070626
  Transmission Date: 20071010
  Serious: Yes (Life-Threatening)
  Sender: FDA-Public Use
  Company Number: SE-JNJFOC-20070606278

PATIENT
  Age: 20 Year
  Sex: Male

DRUGS (4)
  1. CONCERTA [Suspect]
     Indication: DRUG USE FOR UNKNOWN INDICATION
     Route: 048
  2. CISORDINOL [Concomitant]
  3. CISORDINOL [Concomitant]
  4. SERTRALINE [Concomitant]

REACTIONS (1)
  - CONVULSION [None]
